FAERS Safety Report 10912515 (Version 1)
Quarter: 2015Q1

REPORT INFORMATION
  Report Type: Spontaneous
  Country: US (occurrence: None)
  Receive Date: 20150310
  Receipt Date: 20150310
  Transmission Date: 20150721
  Serious: Yes (Other)
  Sender: FDA-Public Use
  Company Number: 0018766359A

PATIENT
  Sex: Female

DRUGS (2)
  1. MEANINGFUL BEAUTY CINDY CRAWFORD SKIN BRIGHTENING DECOLLETE AND NECK TREATMENT SPF 15 [Suspect]
     Active Substance: AVOBENZONE\OCTINOXATE\OCTISALATE\OXYBENZONE
     Dosage: TWICE DAILY DERMAL
     Dates: start: 20150106, end: 20150126
  2. MEANINGFUL BEAUTY CINDY CRAWFORD ANTIOXIDANT SPF 20 UVA/UVB [Suspect]
     Active Substance: AVOBENZONE\OCTINOXATE\OCTISALATE\OXYBENZONE
     Dosage: TWICE DAILY DERMAL
     Dates: start: 20150106, end: 20150126

REACTIONS (5)
  - Corneal abrasion [None]
  - Dark circles under eyes [None]
  - Eye swelling [None]
  - Eye pruritus [None]
  - Vision blurred [None]

NARRATIVE: CASE EVENT DATE: 20150126
